FAERS Safety Report 10041443 (Version 1)
Quarter: 2014Q1

REPORT INFORMATION
  Report Type: Spontaneous
  Country: US (occurrence: None)
  Receive Date: 20140326
  Receipt Date: 20140326
  Transmission Date: 20141002
  Serious: Yes (Hospitalization)
  Sender: FDA-Public Use
  Company Number: None

PATIENT
  Age: 72 Year
  Sex: Female
  Weight: 56 kg

DRUGS (2)
  1. LINEZOLID [Suspect]
     Indication: URINARY TRACT INFECTION
     Route: 048
     Dates: start: 20140220, end: 20140324
  2. LEXAPRO [Concomitant]

REACTIONS (3)
  - Serotonin syndrome [None]
  - Tremor [None]
  - Agitation [None]
